FAERS Safety Report 15584797 (Version 2)
Quarter: 2019Q1

REPORT INFORMATION
  Report Type: Report from Study
  Country: DE (occurrence: DE)
  Receive Date: 20181102
  Receipt Date: 20190118
  Transmission Date: 20190417
  Serious: Yes (Hospitalization, Other)
  Sender: FDA-Public Use
  Company Number: DE-BAYER-RCH-301150

PATIENT
  Age: 79 Year
  Sex: Female
  Weight: 67 kg

DRUGS (22)
  1. ISMO [Suspect]
     Active Substance: ISOSORBIDE MONONITRATE
     Indication: CORONARY ARTERY DISEASE
     Route: 048
     Dates: start: 20000225
  2. LUMINAL (PHENOBARBITAL) [Suspect]
     Active Substance: PHENOBARBITAL SODIUM
     Indication: SEIZURE
     Route: 030
     Dates: start: 20000225
  3. AMLODIPINE [Suspect]
     Active Substance: AMLODIPINE BESYLATE
     Indication: CORONARY ARTERY DISEASE
     Dosage: 5 MG, QD
     Route: 048
     Dates: end: 20000220
  4. FURORESE [FUROSEMIDE] [Suspect]
     Active Substance: FUROSEMIDE
     Indication: OEDEMA
     Dosage: UNK
     Route: 048
     Dates: start: 20000218, end: 20000224
  5. LASIX [Suspect]
     Active Substance: FUROSEMIDE
     Indication: CORONARY ARTERY DISEASE
     Dosage: DAILY DOSE 40 MG
     Route: 048
     Dates: start: 20000225
  6. PARACETAMOL [Concomitant]
     Active Substance: ACETAMINOPHEN
     Indication: PAIN
     Dosage: DAILY DOSE 1000 MG
     Route: 054
     Dates: start: 20000226, end: 20000226
  7. TEGRETAL [Suspect]
     Active Substance: CARBAMAZEPINE
     Indication: SEIZURE
     Dosage: 600 MG, QD
     Route: 048
     Dates: start: 20000125, end: 20000224
  8. TRAMAL [Suspect]
     Active Substance: TRAMADOL
     Indication: PAIN
     Route: 048
     Dates: start: 20000219, end: 20000223
  9. ZANTAC [Suspect]
     Active Substance: RANITIDINE HYDROCHLORIDE
     Indication: GASTRIC ULCER
     Route: 048
     Dates: start: 20000225
  10. ISOSORBIDE DINITRATE. [Suspect]
     Active Substance: ISOSORBIDE DINITRATE
     Indication: CORONARY ARTERY DISEASE
     Dosage: 1 DF, QD
     Route: 048
     Dates: end: 20000218
  11. RANITIC [Suspect]
     Active Substance: RANITIDINE HYDROCHLORIDE
     Indication: GASTRIC ULCER
     Dosage: 300 MG, QD
     Route: 048
     Dates: start: 20000218, end: 20000224
  12. DIAZEPAM. [Suspect]
     Active Substance: DIAZEPAM
     Indication: SEIZURE
     Dosage: DAILY DOSE 5 MG
     Route: 042
     Dates: start: 20000218, end: 20000225
  13. EUSAPRIM (SULFAMETHOXAZOLE TRIMETHOPRIM) [Suspect]
     Active Substance: SULFAMETHOXAZOLE\TRIMETHOPRIM
     Indication: CYSTITIS
     Dosage: 2 DF, QD
     Route: 048
     Dates: start: 20000226
  14. FURSEMID (FUROSEMIDE) [Suspect]
     Active Substance: FUROSEMIDE
     Indication: OEDEMA
     Dosage: 40 MG, QD
     Route: 048
     Dates: end: 20000218
  15. AMLODIPINE [Suspect]
     Active Substance: AMLODIPINE BESYLATE
     Indication: CORONARY ARTERY DISEASE
     Dosage: 5 MG (DAILY DOSE), , ORAL
     Route: 048
     Dates: start: 20000130, end: 20000227
  16. EUSAPRIM [SULFAMETHOXAZOLE;TRIMETHOPRIM] [Suspect]
     Active Substance: SULFAMETHOXAZOLE\TRIMETHOPRIM
     Indication: CYSTITIS
     Dosage: 2 DF, QD
     Route: 048
     Dates: start: 20000226, end: 20000227
  17. CORANGIN [Suspect]
     Active Substance: ISOSORBIDE MONONITRATE
     Indication: CORONARY ARTERY DISEASE
     Dosage: 1 DF, QD
     Route: 048
     Dates: start: 20000218, end: 20000224
  18. ASPIRIN 100 MG [Suspect]
     Active Substance: ASPIRIN
     Indication: CORONARY ARTERY DISEASE
     Dosage: 100 MG, QD
     Route: 048
     Dates: start: 20000130, end: 20000227
  19. RIVOTRIL [Suspect]
     Active Substance: CLONAZEPAM
     Indication: SEIZURE
     Dosage: DAILY DOSE 1 MG
     Route: 042
     Dates: start: 20000224, end: 20000224
  20. PHENHYDAN (PHENYTOIN) [Suspect]
     Active Substance: PHENYTOIN
     Indication: SEIZURE
     Dosage: UNK
     Route: 048
     Dates: start: 20000226, end: 20000227
  21. PHENHYDAN (PHENYTOIN) [Suspect]
     Active Substance: PHENYTOIN
     Indication: SEIZURE
     Dosage: UNK
     Route: 042
     Dates: start: 20000225, end: 20000226
  22. PHENHYDAN [PHENYTOIN] [Suspect]
     Active Substance: PHENYTOIN
     Indication: SEIZURE
     Dosage: 250 MG
     Route: 042

REACTIONS (10)
  - Conjunctivitis [Recovered/Resolved]
  - Rash vesicular [Recovered/Resolved]
  - Blister [Recovered/Resolved]
  - Eyelid oedema [Recovered/Resolved]
  - Lip erosion [Recovered/Resolved]
  - Stevens-Johnson syndrome [Recovered/Resolved]
  - Erythema [Recovered/Resolved]
  - Pruritus generalised [Recovered/Resolved]
  - Rash macular [Recovered/Resolved]
  - Mucosal erosion [Recovered/Resolved]

NARRATIVE: CASE EVENT DATE: 20000227
